FAERS Safety Report 13524698 (Version 1)
Quarter: 2017Q2

REPORT INFORMATION
  Report Type: Spontaneous
  Country: US (occurrence: US)
  Receive Date: 20170508
  Receipt Date: 20170508
  Transmission Date: 20170830
  Serious: No
  Sender: FDA-Public Use
  Company Number: US-ROCHE-1077669

PATIENT
  Sex: Male

DRUGS (6)
  1. 5-FLUOROURACIL [Suspect]
     Active Substance: FLUOROURACIL
     Indication: COLORECTAL CANCER METASTATIC
  2. ERBITUX [Concomitant]
     Active Substance: CETUXIMAB
     Indication: COLORECTAL CANCER METASTATIC
  3. AVASTIN [Suspect]
     Active Substance: BEVACIZUMAB
     Indication: COLORECTAL CANCER METASTATIC
     Route: 065
  4. FOLINIC ACID [Concomitant]
     Active Substance: LEUCOVORIN
     Indication: COLORECTAL CANCER METASTATIC
  5. OXALIPLATIN. [Concomitant]
     Active Substance: OXALIPLATIN
     Indication: COLORECTAL CANCER METASTATIC
  6. IRINOTECAN [Concomitant]
     Active Substance: IRINOTECAN
     Indication: COLORECTAL CANCER METASTATIC

REACTIONS (1)
  - Drug hypersensitivity [Unknown]
